FAERS Safety Report 7606716-8 (Version None)
Quarter: 2011Q3

REPORT INFORMATION
  Report Type: 
  Country: None (occurrence: None)
  Receive Date: 20110713
  Receipt Date: 20110707
  Transmission Date: 20111222
  Serious: Yes (Hospitalization)
  Sender: FDA-Public Use
  Company Number: DE-MERCK-1107DEU00027

PATIENT
  Sex: Male

DRUGS (2)
  1. ASPIRIN [Concomitant]
     Route: 048
  2. JANUMET [Suspect]
     Indication: DIABETES MELLITUS
     Route: 048

REACTIONS (3)
  - HAEMOPTYSIS [None]
  - ADVERSE EVENT [None]
  - AUTOIMMUNE THYROIDITIS [None]
